FAERS Safety Report 12065926 (Version 4)
Quarter: 2016Q2

REPORT INFORMATION
  Report Type: Report from Study
  Country: EG (occurrence: EG)
  Receive Date: 20160211
  Receipt Date: 20160408
  Transmission Date: 20160815
  Serious: Yes (Other)
  Sender: FDA-Public Use
  Company Number: EG-TEVA-634487ACC

PATIENT
  Age: 61 Year
  Sex: Male

DRUGS (28)
  1. OBINUTUZUMAB [Suspect]
     Active Substance: OBINUTUZUMAB
     Indication: CHRONIC LYMPHOCYTIC LEUKAEMIA
     Dosage: SPLIT OF 1000 MG (40 ML) FOR C1D1 AND C1D2
     Route: 042
     Dates: start: 20160117
  2. DEXAMETHASONE. [Concomitant]
     Active Substance: DEXAMETHASONE
     Dosage: 16 MILLIGRAM DAILY;
     Route: 042
     Dates: start: 20160117, end: 20160117
  3. DEXAMETHASONE. [Concomitant]
     Active Substance: DEXAMETHASONE
     Dosage: SINGLE DOSE
     Route: 042
     Dates: start: 20160123, end: 20160123
  4. DEXAMETHASONE. [Concomitant]
     Active Substance: DEXAMETHASONE
     Dosage: SINGLE DOSE
     Route: 042
     Dates: start: 20160217, end: 20160217
  5. ALLOPURINOL. [Concomitant]
     Active Substance: ALLOPURINOL
     Indication: PROPHYLAXIS
     Dosage: 300 MILLIGRAM DAILY;
     Route: 048
     Dates: start: 20160117
  6. AVIL                               /00085102/ [Concomitant]
     Indication: PREMEDICATION
     Dosage: SINGLE DOSE
     Route: 042
     Dates: start: 20160117, end: 20160117
  7. DEXAMETHASONE. [Concomitant]
     Active Substance: DEXAMETHASONE
     Indication: PRODUCT USED FOR UNKNOWN INDICATION
     Dosage: SINGLE DOSE
     Route: 042
     Dates: start: 20160116, end: 20160116
  8. HYDROCORTISONE. [Concomitant]
     Active Substance: HYDROCORTISONE
     Indication: PREMEDICATION
     Dosage: SINGLE DOSE
     Route: 042
     Dates: start: 20160117, end: 20160117
  9. PHENIRAMINE MALEATE [Concomitant]
     Active Substance: PHENIRAMINE MALEATE
     Dosage: SINGLE DOSE
     Route: 042
     Dates: start: 20160117
  10. PHENIRAMINE MALEATE [Concomitant]
     Active Substance: PHENIRAMINE MALEATE
     Dosage: SINGLE DOSE
     Route: 042
     Dates: start: 20160217
  11. PHENIRAMINE MALEATE [Concomitant]
     Active Substance: PHENIRAMINE MALEATE
     Dosage: SINGLE DOSE
     Route: 042
     Dates: start: 20160118
  12. DEXAMETHASONE. [Concomitant]
     Active Substance: DEXAMETHASONE
     Dosage: SINGLE DOSE
     Route: 042
     Dates: start: 20160216, end: 20160216
  13. HYDROCORTISONE. [Concomitant]
     Active Substance: HYDROCORTISONE
     Dosage: SINGLE DOSE
     Route: 042
     Dates: start: 20160124, end: 20160124
  14. AVIL                               /00085102/ [Concomitant]
     Dosage: SINGLE DOSE
     Route: 042
     Dates: start: 20160124, end: 20160124
  15. DEXAMETHASONE. [Concomitant]
     Active Substance: DEXAMETHASONE
     Dosage: SINGLE DOSE
     Route: 042
     Dates: start: 20160201, end: 20160201
  16. PARACETAMOL [Concomitant]
     Active Substance: ACETAMINOPHEN
     Indication: PRODUCT USED FOR UNKNOWN INDICATION
     Dosage: 1500 MILLIGRAM DAILY;
     Route: 042
     Dates: start: 20160117, end: 20160117
  17. CIPROFLOXACIN. [Concomitant]
     Active Substance: CIPROFLOXACIN
     Indication: PROPHYLAXIS
     Dosage: 1000 MILLIGRAM DAILY;
     Route: 048
     Dates: start: 20160124, end: 20160205
  18. PHENIRAMINE MALEATE [Concomitant]
     Active Substance: PHENIRAMINE MALEATE
     Dosage: SINGLE DOSE
     Route: 042
     Dates: start: 20160202
  19. AVIL                               /00085102/ [Concomitant]
     Dosage: SINGLE DOSE
     Route: 042
     Dates: start: 20160118, end: 20160118
  20. HYDROCORTISONE. [Concomitant]
     Active Substance: HYDROCORTISONE
     Dosage: SINGLE DOSE
     Route: 042
     Dates: start: 20160118, end: 20160118
  21. HYDROCORTISONE. [Concomitant]
     Active Substance: HYDROCORTISONE
     Dosage: SINGLE DOSE
     Route: 042
     Dates: start: 20160217, end: 20160217
  22. ZANTAC [Concomitant]
     Active Substance: RANITIDINE HYDROCHLORIDE
     Indication: PROPHYLAXIS
     Dosage: 150 MILLIGRAM DAILY;
     Route: 048
     Dates: start: 20160117
  23. AVIL                               /00085102/ [Concomitant]
     Indication: PRODUCT USED FOR UNKNOWN INDICATION
     Dosage: 75 MILLIGRAM DAILY;
     Route: 042
     Dates: start: 20160117, end: 20160117
  24. HYDROCORTISONE. [Concomitant]
     Active Substance: HYDROCORTISONE
     Dosage: SINGLE DOSE
     Route: 042
     Dates: start: 20160202, end: 20160202
  25. BENDAMUSTINE HYDROCHLORIDE. [Suspect]
     Active Substance: BENDAMUSTINE HYDROCHLORIDE
     Indication: CHRONIC LYMPHOCYTIC LEUKAEMIA
     Dosage: CYCLIC (C1D1) (TWICE EVERY 28 DAYS)
     Route: 042
     Dates: start: 20160117, end: 20160117
  26. BENDAMUSTINE HYDROCHLORIDE. [Suspect]
     Active Substance: BENDAMUSTINE HYDROCHLORIDE
     Dosage: CYCLIC (C1D2)
     Route: 042
     Dates: start: 20160118, end: 20160118
  27. FLUCONAZOLE. [Concomitant]
     Active Substance: FLUCONAZOLE
     Indication: PROPHYLAXIS
     Dosage: 100 MILLIGRAM DAILY;
     Route: 048
     Dates: start: 20160124, end: 20160205
  28. PHENIRAMINE MALEATE [Concomitant]
     Active Substance: PHENIRAMINE MALEATE
     Dosage: SINGLE DOSE
     Route: 042
     Dates: start: 20160124

REACTIONS (2)
  - Hypocalcaemia [Recovering/Resolving]
  - Ventricular extrasystoles [Recovered/Resolved]

NARRATIVE: CASE EVENT DATE: 20160119
